FAERS Safety Report 7400779-0 (Version None)
Quarter: 2011Q2

REPORT INFORMATION
  Report Type: 
  Country: None (occurrence: None)
  Receive Date: 20110407
  Receipt Date: 20110308
  Transmission Date: 20111010
  Serious: Yes (Other)
  Sender: FDA-Public Use
  Company Number: B0706220A

PATIENT
  Age: 63 Year

DRUGS (4)
  1. CORTISONE [Concomitant]
  2. HYDROCORTISONE [Concomitant]
     Indication: ADRENAL INSUFFICIENCY
  3. PULMICORT [Concomitant]
  4. FLUTICASONE PROPIONATE [Suspect]
     Indication: ASTHMA
     Dosage: 1000MCG PER DAY
     Route: 065
     Dates: start: 20090901

REACTIONS (1)
  - ADRENAL INSUFFICIENCY [None]
